FAERS Safety Report 9268275 (Version 2)
Quarter: 2014Q2

REPORT INFORMATION
  Report Type: Spontaneous
  Country: DK (occurrence: CN)
  Receive Date: 20130502
  Receipt Date: 20140619
  Transmission Date: 20141212
  Serious: Yes (Hospitalization)
  Sender: FDA-Public Use
  Company Number: CN-FRI-1000044855

PATIENT
  Age: 73 Year
  Sex: Female

DRUGS (5)
  1. CITALOPRAM [Suspect]
     Indication: DEPRESSION
     Dosage: 20 MG
     Route: 048
     Dates: start: 2002
  2. CITALOPRAM [Suspect]
     Dosage: 30 MG
     Route: 048
  3. CITALOPRAM [Suspect]
     Dosage: 20 MG
     Route: 048
     Dates: end: 201303
  4. CITALOPRAM [Suspect]
     Dosage: 40 MG
     Route: 048
     Dates: start: 201303
  5. ORYZANOL [Concomitant]
     Indication: PRODUCT USED FOR UNKNOWN INDICATION
     Route: 048
     Dates: start: 20130421, end: 20130421

REACTIONS (10)
  - Constipation [Not Recovered/Not Resolved]
  - Flushing [Recovered/Resolved]
  - Hyperhidrosis [Recovered/Resolved]
  - Feeling of body temperature change [Recovered/Resolved]
  - Restlessness [Recovered/Resolved]
  - Dysphoria [Recovered/Resolved]
  - Agitation [Recovered/Resolved]
  - Nasopharyngitis [Recovered/Resolved]
  - Rash erythematous [Not Recovered/Not Resolved]
  - Pruritus [Not Recovered/Not Resolved]
